FAERS Safety Report 4624444-8 (Version None)
Quarter: 2005Q1

REPORT INFORMATION
  Report Type: 
  Country: None (occurrence: None)
  Receive Date: 20050331
  Receipt Date: 20050318
  Transmission Date: 20050727
  Serious: Yes (Other)
  Sender: FDA-Public Use
  Company Number: US-MERCK-0503USA03460

PATIENT
  Age: 76 Year
  Sex: Male

DRUGS (6)
  1. ZOCOR [Suspect]
     Indication: BLOOD CHOLESTEROL INCREASED
     Route: 048
     Dates: start: 19980101
  2. FOSAMAX [Concomitant]
     Route: 048
  3. SYNTHROID [Concomitant]
     Route: 065
  4. GEMFIBROZIL [Concomitant]
     Route: 065
     Dates: end: 20050301
  5. HUMATROPE [Concomitant]
     Route: 065
  6. CLOTRIMAZOLE [Concomitant]
     Route: 065

REACTIONS (6)
  - BACK PAIN [None]
  - BRAIN MASS [None]
  - DIFFICULTY IN WALKING [None]
  - MYALGIA [None]
  - OEDEMA PERIPHERAL [None]
  - PAIN IN EXTREMITY [None]
